FAERS Safety Report 25795200 (Version 1)
Quarter: 2025Q3

REPORT INFORMATION
  Report Type: Spontaneous
  Country: EU (occurrence: EU)
  Receive Date: 20250912
  Receipt Date: 20250912
  Transmission Date: 20251021
  Serious: Yes (Hospitalization)
  Sender: ROCHE
  Company Number: None

PATIENT
  Age: 78 Year
  Sex: Female

DRUGS (5)
  1. OSELTAMIVIR [Suspect]
     Active Substance: OSELTAMIVIR
     Indication: Influenza
     Route: 048
     Dates: start: 20250204, end: 20250209
  2. IBUPROFENE EG 400 mg, comprim? pellicul? [Concomitant]
     Indication: Pyrexia
     Route: 048
  3. DOLIPRANE [Concomitant]
     Active Substance: ACETAMINOPHEN
     Indication: Pain
     Route: 048
  4. DOLIPRANE [Concomitant]
     Active Substance: ACETAMINOPHEN
     Indication: Pyrexia
  5. AMOXICILLINE BIOGARAN 1 g, [Concomitant]
     Indication: Tonsillitis
     Route: 048
     Dates: start: 20250208, end: 20250214

REACTIONS (1)
  - Miller Fisher syndrome [Recovered/Resolved with Sequelae]

NARRATIVE: CASE EVENT DATE: 20250210
